FAERS Safety Report 15049424 (Version 1)
Quarter: 2018Q2

REPORT INFORMATION
  Report Type: Report from Study
  Country: US (occurrence: US)
  Receive Date: 20180622
  Receipt Date: 20180622
  Transmission Date: 20180711
  Serious: Yes (Disabling, Other)
  Sender: FDA-Public Use
  Company Number: US-TEVA-2018-US-910633

PATIENT
  Sex: Female

DRUGS (1)
  1. COPAXONE [Suspect]
     Active Substance: GLATIRAMER ACETATE
     Dosage: UNKNOWN FORM STRENGTH
     Route: 065

REACTIONS (7)
  - Face oedema [Unknown]
  - Tachycardia [Unknown]
  - Asthenia [Unknown]
  - Feeling hot [Unknown]
  - Hypersensitivity [Unknown]
  - Injection site rash [Unknown]
  - Disability [Unknown]
